FAERS Safety Report 11158937 (Version 1)
Quarter: 2015Q2

REPORT INFORMATION
  Report Type: Spontaneous
  Country: US (occurrence: None)
  Receive Date: 20150521
  Receipt Date: 20150521
  Transmission Date: 20150821
  Serious: Yes (Other)
  Sender: FDA-Public Use
  Company Number: VISP-PR-1503S-0083

PATIENT
  Age: 29 Year
  Sex: Female
  Weight: 77.11 kg

DRUGS (7)
  1. VISIPAQUE [Suspect]
     Active Substance: IODIXANOL
     Indication: CHOLECYSTECTOMY
     Route: 042
     Dates: start: 20150320, end: 20150320
  2. VISIPAQUE [Suspect]
     Active Substance: IODIXANOL
     Indication: PAIN
     Route: 042
     Dates: start: 20150320, end: 20150320
  3. MORPHINE [Concomitant]
     Active Substance: MORPHINE
  4. ZOFRAN (ONDANSETRON HYDROCHLORIDE) [Concomitant]
  5. VISIPAQUE [Suspect]
     Active Substance: IODIXANOL
     Indication: DIAGNOSTIC PROCEDURE
     Route: 042
     Dates: start: 20150320, end: 20150320
  6. VISIPAQUE [Suspect]
     Active Substance: IODIXANOL
     Indication: DYSPNOEA
     Route: 042
     Dates: start: 20150320, end: 20150320
  7. NORMAL SALINE (SODIUM CHLORIDE) [Concomitant]

REACTIONS (1)
  - Urticaria [None]

NARRATIVE: CASE EVENT DATE: 20150320
